FAERS Safety Report 7063117-1 (Version None)
Quarter: 2010Q4

REPORT INFORMATION
  Report Type: 
  Country: None (occurrence: None)
  Receive Date: 20101026
  Receipt Date: 20100416
  Transmission Date: 20110411
  Serious: Yes (Other)
  Sender: FDA-Public Use
  Company Number: US-PFIZER INC-2010048824

PATIENT
  Sex: Female
  Weight: 95.238 kg

DRUGS (2)
  1. LIPITOR [Suspect]
     Indication: BLOOD CHOLESTEROL INCREASED
     Dosage: 80 MG, 1X/DAY
     Dates: start: 20090101, end: 20100301
  2. PLAVIX [Concomitant]
     Dosage: UNK

REACTIONS (7)
  - ABDOMINAL DISCOMFORT [None]
  - BLEPHAROSPASM [None]
  - DECREASED APPETITE [None]
  - HEADACHE [None]
  - MALAISE [None]
  - MUSCULAR WEAKNESS [None]
  - MYALGIA [None]
